FAERS Safety Report 8854782 (Version 2)
Quarter: 2013Q1

REPORT INFORMATION
  Report Type: Spontaneous
  Country: JP (occurrence: JP)
  Receive Date: 20121023
  Receipt Date: 20130315
  Transmission Date: 20140127
  Serious: Yes (Death, Hospitalization, Other)
  Sender: FDA-Public Use
  Company Number: JP-SANOFI-AVENTIS-2012SA077062

PATIENT
  Age: 64 Year
  Sex: Male
  Weight: 72 kg

DRUGS (8)
  1. TAXOTERE [Suspect]
     Indication: NON-SMALL CELL LUNG CANCER
     Route: 042
     Dates: start: 20120307, end: 20120307
  2. TAXOTERE [Suspect]
     Indication: NON-SMALL CELL LUNG CANCER
     Route: 042
     Dates: start: 20120502, end: 20120502
  3. TAXOTERE [Suspect]
     Indication: NON-SMALL CELL LUNG CANCER
     Route: 042
     Dates: start: 20120404, end: 20120404
  4. HYPEN [Concomitant]
     Indication: CANCER PAIN
     Route: 048
     Dates: start: 20111128
  5. MUCOSTA [Concomitant]
     Indication: PROPHYLAXIS AGAINST GASTROINTESTINAL ULCER
     Route: 048
     Dates: start: 20111128
  6. AMOBAN [Concomitant]
     Indication: INSOMNIA
     Route: 048
     Dates: start: 20120418
  7. ZOMETA [Concomitant]
     Indication: BONE NEOPLASM
     Route: 042
     Dates: start: 20120418, end: 20120418
  8. AVELOX [Concomitant]
     Indication: PNEUMONIA
     Route: 048
     Dates: start: 20120418, end: 20120502

REACTIONS (4)
  - Lung disorder [Fatal]
  - Febrile neutropenia [Unknown]
  - Neutropenia [Unknown]
  - Neutropenia [Unknown]
